FAERS Safety Report 17337236 (Version 1)
Quarter: 2020Q1

REPORT INFORMATION
  Report Type: Spontaneous
  Country: CA (occurrence: CA)
  Receive Date: 20200129
  Receipt Date: 20200129
  Transmission Date: 20200409
  Serious: Yes (Other)
  Sender: FDA-Public Use
  Company Number: CA-AUROBINDO-AUR-APL-2020-004122

PATIENT
  Age: 88 Year
  Sex: Male

DRUGS (6)
  1. METFORMIN [Suspect]
     Active Substance: METFORMIN HYDROCHLORIDE
     Indication: TYPE 2 DIABETES MELLITUS
     Dosage: 1 GRAM, TWO TIMES A DAY
     Route: 048
  2. PRANDASE [Concomitant]
     Indication: PRODUCT USED FOR UNKNOWN INDICATION
     Dosage: 15 MILLIGRAM, 3 TIMES A DAY
     Route: 065
  3. INVOKANA [Suspect]
     Active Substance: CANAGLIFLOZIN
     Indication: TYPE 2 DIABETES MELLITUS
     Dosage: 100 MILLIGRAM, ONCE A DAY
     Route: 048
  4. INVOKANA [Suspect]
     Active Substance: CANAGLIFLOZIN
     Dosage: 300 MILLIGRAM, ONCE A DAY
     Route: 048
  5. GLUCOBAY [Suspect]
     Active Substance: ACARBOSE
     Indication: TYPE 2 DIABETES MELLITUS
     Dosage: UNK
     Route: 048
  6. DIAMICRON [Concomitant]
     Active Substance: GLICLAZIDE
     Indication: TYPE 2 DIABETES MELLITUS
     Dosage: 60 MILLIGRAM, ONCE A DAY
     Route: 065

REACTIONS (2)
  - Glucose urine present [Unknown]
  - Ketonuria [Unknown]
